FAERS Safety Report 6271991-1 (Version None)
Quarter: 2009Q3

REPORT INFORMATION
  Report Type: 
  Country: None (occurrence: None)
  Receive Date: 20090713
  Receipt Date: 20090414
  Transmission Date: 20100115
  Serious: No
  Sender: FDA-Public Use
  Company Number: 2009BM000095

PATIENT
  Age: 8 Year
  Sex: Male
  Weight: 27.6694 kg

DRUGS (3)
  1. KUVAN [Suspect]
     Indication: PHENYLKETONURIA
     Dosage: 600 MG; DAILY; PO
     Route: 048
     Dates: start: 20090411
  2. SINGULAIR [Concomitant]
  3. LORADINE [Concomitant]

REACTIONS (5)
  - CRYING [None]
  - FEAR [None]
  - IRRITABILITY [None]
  - NERVOUSNESS [None]
  - PARANOIA [None]
